FAERS Safety Report 20594474 (Version 1)
Quarter: 2022Q1

REPORT INFORMATION
  Report Type: Spontaneous
  Country: US (occurrence: US)
  Receive Date: 20220315
  Receipt Date: 20220315
  Transmission Date: 20220423
  Serious: No
  Sender: FDA-Public Use
  Company Number: US-MACLEODS PHARMACEUTICALS US LTD-MAC2022034748

PATIENT

DRUGS (2)
  1. ZIPRASIDONE [Suspect]
     Active Substance: ZIPRASIDONE
     Indication: Depression
     Dosage: UNK; GENERIC OF GEODON; NDC NUMBER: 33342-0144-09
     Route: 065
  2. PANTOPRAZOLE [Concomitant]
     Active Substance: PANTOPRAZOLE
     Indication: Gastrooesophageal reflux disease
     Dosage: 20 MILLIGRAM
     Route: 065

REACTIONS (4)
  - Nasal discomfort [Unknown]
  - Rhinalgia [Unknown]
  - Product use complaint [Unknown]
  - Wrong technique in product usage process [Unknown]
